FAERS Safety Report 18511642 (Version 4)
Quarter: 2021Q1

REPORT INFORMATION
  Report Type: Spontaneous
  Country: US (occurrence: US)
  Receive Date: 20201117
  Receipt Date: 20210216
  Transmission Date: 20210419
  Serious: Yes (Hospitalization)
  Sender: FDA-Public Use
  Company Number: US-PFIZER INC-2020449419

PATIENT
  Age: 63 Year
  Sex: Female
  Weight: 90.26 kg

DRUGS (6)
  1. RUXIENCE [Suspect]
     Active Substance: RITUXIMAB-PVVR
     Indication: NON-HODGKIN^S LYMPHOMA
     Dosage: 716.2 MG, WEEKLY [716.2MG BY EVERY WEEKLY]
     Route: 042
     Dates: start: 20200828
  2. RUXIENCE [Suspect]
     Active Substance: RITUXIMAB-PVVR
     Indication: LYMPHOMA
     Dosage: 716 MG, WEEKLY
     Route: 042
     Dates: start: 20200828
  3. RUXIENCE [Suspect]
     Active Substance: RITUXIMAB-PVVR
     Dosage: 762 MG (Q3MONTHS)
  4. DECADRON [Concomitant]
     Active Substance: DEXAMETHASONE
     Indication: PREMEDICATION
     Dosage: UNK
     Dates: start: 20200821
  5. TYLENOL [Concomitant]
     Active Substance: ACETAMINOPHEN
     Indication: PREMEDICATION
     Dosage: UNK
     Dates: start: 20200821
  6. BENADRYL [Concomitant]
     Active Substance: DIPHENHYDRAMINE HYDROCHLORIDE
     Indication: PREMEDICATION
     Dosage: UNK
     Dates: start: 20200821

REACTIONS (4)
  - Off label use [Unknown]
  - Cough [Unknown]
  - Illness [Unknown]
  - Vomiting [Unknown]

NARRATIVE: CASE EVENT DATE: 20200904
